FAERS Safety Report 20806907 (Version 1)
Quarter: 2022Q2

REPORT INFORMATION
  Report Type: Report from Study
  Country: BR (occurrence: BR)
  Receive Date: 20220510
  Receipt Date: 20220510
  Transmission Date: 20220721
  Serious: Yes (Other)
  Sender: FDA-Public Use
  Company Number: BR-UCBSA-2022025512

PATIENT
  Age: 62 Year
  Sex: Male

DRUGS (4)
  1. LACOSAMIDE [Suspect]
     Active Substance: LACOSAMIDE
     Indication: Seizure
     Dosage: 2 DOSAGE FORM DAILY
     Dates: start: 201910
  2. CLOBAZAM [Concomitant]
     Active Substance: CLOBAZAM
     Indication: Anxiety
     Dosage: 1 DOSAGE FORM, ONCE DAILY (QD)
     Dates: start: 202006
  3. VALPROATE SODIUM [Concomitant]
     Active Substance: VALPROATE SODIUM
     Indication: Seizure
     Dosage: 1 DOSAGE FORM, ONCE DAILY (QD)
     Dates: start: 202006
  4. DOMPERIDONE [Concomitant]
     Active Substance: DOMPERIDONE
     Indication: Spermatozoa progressive motility abnormal
     Dosage: 1 DOSAGE FORM, ONCE DAILY (QD)
     Dates: start: 202006

REACTIONS (2)
  - COVID-19 [Not Recovered/Not Resolved]
  - Bedridden [Not Recovered/Not Resolved]

NARRATIVE: CASE EVENT DATE: 20200501
